FAERS Safety Report 7462548-5 (Version None)
Quarter: 2011Q2

REPORT INFORMATION
  Report Type: 
  Country: None (occurrence: None)
  Receive Date: 20110506
  Receipt Date: 20110428
  Transmission Date: 20111010
  Serious: Yes (Disabling, Other)
  Sender: FDA-Public Use
  Company Number: PT-AMGEN-PRTSP2011022336

PATIENT
  Sex: Male
  Weight: 74.5 kg

DRUGS (4)
  1. CETUXIMAB W/IRINOTECAN [Concomitant]
     Dosage: UNK
     Route: 042
     Dates: start: 20100101
  2. FOLFOX-4 [Concomitant]
     Dosage: UNK
     Route: 042
     Dates: start: 20080101
  3. VECTIBIX [Suspect]
     Indication: COLON CANCER METASTATIC
     Dosage: 450 MG, PER CHEMO REGIM
     Route: 042
     Dates: start: 20110325
  4. FOLFIRI [Concomitant]
     Dosage: UNK
     Route: 042
     Dates: start: 20090101

REACTIONS (5)
  - PALMAR-PLANTAR ERYTHRODYSAESTHESIA SYNDROME [None]
  - ABDOMINAL DISTENSION [None]
  - DERMATITIS ACNEIFORM [None]
  - PRURITUS [None]
  - BURNING SENSATION [None]
